FAERS Safety Report 4505313-0 (Version None)
Quarter: 2004Q4

REPORT INFORMATION
  Report Type: 
  Country: None (occurrence: None)
  Receive Date: 20041015
  Receipt Date: 20040517
  Transmission Date: 20050328
  Serious: Yes (Hospitalization, Other)
  Sender: FDA-Public Use
  Company Number: 2004033165

PATIENT
  Sex: Female

DRUGS (3)
  1. NEURONTIN [Suspect]
     Indication: ANXIETY
     Dosage: 1700 MG (TID)
     Dates: start: 20030101
  2. NEURONTIN [Suspect]
     Indication: INSOMNIA
     Dosage: 1700 MG (TID)
     Dates: start: 20030101
  3. SERTRALINE HCL [Concomitant]

REACTIONS (1)
  - NEPHROLITHIASIS [None]
